FAERS Safety Report 22722509 (Version 7)
Quarter: 2024Q1

REPORT INFORMATION
  Report Type: Report from Study
  Country: US (occurrence: US)
  Receive Date: 20230719
  Receipt Date: 20240125
  Transmission Date: 20240410
  Serious: Yes (Hospitalization, Other)
  Sender: FDA-Public Use
  Company Number: US-INSMED-2022-00435-USAA

PATIENT
  Age: 46 Year
  Sex: Female
  Weight: 49 kg

DRUGS (4)
  1. ARIKAYCE [Suspect]
     Active Substance: AMIKACIN
     Indication: Mycobacterium avium complex infection
     Dosage: 590 MILLIGRAM, QD
     Route: 055
     Dates: start: 20220215, end: 20220215
  2. ARIKAYCE [Suspect]
     Active Substance: AMIKACIN
     Dosage: 590 MILLIGRAM
     Route: 055
     Dates: start: 202202, end: 20220221
  3. ARIKAYCE [Suspect]
     Active Substance: AMIKACIN
     Dosage: 590 MILLIGRAM, QD
     Route: 055
     Dates: start: 20230703, end: 20230707
  4. ARIKAYCE [Suspect]
     Active Substance: AMIKACIN
     Dosage: 590 MILLIGRAM, ONCE PER WEEK, THEN WORKING UP TO 2 DAYS A WEEK AND THEN UP TO 3 DAYS A WEEK
     Route: 055
     Dates: start: 2023

REACTIONS (12)
  - Oxygen saturation decreased [Not Recovered/Not Resolved]
  - Lung operation [Unknown]
  - Pneumothorax [Not Recovered/Not Resolved]
  - Mycobacterium avium complex infection [Unknown]
  - Hypersensitivity [Recovered/Resolved]
  - Palpitations [Not Recovered/Not Resolved]
  - Cough [Not Recovered/Not Resolved]
  - Unevaluable event [Unknown]
  - Dyspnoea [Not Recovered/Not Resolved]
  - Incorrect dose administered [Unknown]
  - Therapy interrupted [Unknown]
  - Off label use [Unknown]

NARRATIVE: CASE EVENT DATE: 20220201
